FAERS Safety Report 6175360-4 (Version None)
Quarter: 2009Q2

REPORT INFORMATION
  Report Type: 
  Country: None (occurrence: None)
  Receive Date: 20090429
  Receipt Date: 20090420
  Transmission Date: 20091009
  Serious: Yes (Other)
  Sender: FDA-Public Use
  Company Number: 2009US001199

PATIENT
  Age: 46 Year
  Sex: Female

DRUGS (3)
  1. PROGRAF [Suspect]
     Indication: LIVER TRANSPLANT
     Dosage: /D
  2. MYCOPHENOLATE MOFETIL [Concomitant]
  3. PREDNISONE TAB [Concomitant]

REACTIONS (2)
  - CROHN'S DISEASE [None]
  - CYTOMEGALOVIRUS INFECTION [None]
